FAERS Safety Report 4760927-8 (Version None)
Quarter: 2005Q3

REPORT INFORMATION
  Report Type: 
  Country: None (occurrence: None)
  Receive Date: 20050901
  Receipt Date: 20050824
  Transmission Date: 20060218
  Serious: Yes (Life-Threatening, Hospitalization)
  Sender: FDA-Public Use
  Company Number: 2005119652

PATIENT
  Age: 17 Year
  Sex: Female

DRUGS (1)
  1. DILANTIN [Suspect]
     Indication: ILL-DEFINED DISORDER
     Dosage: 200 MG (1 IN 1 D), ORAL
     Route: 048
     Dates: start: 20050604, end: 20050709

REACTIONS (1)
  - RENAL FAILURE [None]
